FAERS Safety Report 21308517 (Version 3)
Quarter: 2022Q3

REPORT INFORMATION
  Report Type: Spontaneous
  Country: JP (occurrence: JP)
  Receive Date: 20220908
  Receipt Date: 20220919
  Transmission Date: 20221027
  Serious: Yes (Hospitalization, Other)
  Sender: FDA-Public Use
  Company Number: ALC2022JP004073

PATIENT
  Age: 68 Year
  Sex: Male

DRUGS (2)
  1. BSS PLUS [Suspect]
     Active Substance: CALCIUM CHLORIDE\DEXTROSE\MAGNESIUM CHLORIDE\OXIGLUTATIONE\POTASSIUM CHLORIDE\SODIUM BICARBONATE\SOD
     Indication: Cataract operation
     Dosage: UNK
     Route: 047
  2. EPINEPHRINE [Suspect]
     Active Substance: EPINEPHRINE
     Indication: Cataract operation
     Dosage: UNK
     Route: 065

REACTIONS (4)
  - Non-infectious endophthalmitis [Unknown]
  - Toxic anterior segment syndrome [Unknown]
  - Product quality issue [Unknown]
  - Wrong technique in product usage process [Unknown]

NARRATIVE: CASE EVENT DATE: 20220830
